FAERS Safety Report 8587172-2 (Version None)
Quarter: 2012Q3

REPORT INFORMATION
  Report Type: 
  Country: None (occurrence: None)
  Receive Date: 20120810
  Receipt Date: 20120329
  Transmission Date: 20120928
  Serious: Yes (Other)
  Sender: FDA-Public Use
  Company Number: US-ASTRAZENECA-2008UW21221

PATIENT
  Age: 83 Year
  Sex: Female
  Weight: 77.1 kg

DRUGS (4)
  1. LIPITOR [Concomitant]
  2. ARIMIDEX [Suspect]
     Dosage: GENERIC
     Route: 048
  3. ARIMIDEX [Suspect]
     Indication: BREAST CANCER
     Route: 048
     Dates: start: 20080501
  4. LISINOPRIL [Concomitant]

REACTIONS (4)
  - HIP FRACTURE [None]
  - MALAISE [None]
  - DIZZINESS [None]
  - GAIT DISTURBANCE [None]
